FAERS Safety Report 11944206 (Version 1)
Quarter: 2016Q1

REPORT INFORMATION
  Report Type: Spontaneous
  Country: US (occurrence: US)
  Receive Date: 20160125
  Receipt Date: 20160125
  Transmission Date: 20160526
  Serious: No
  Sender: FDA-Public Use
  Company Number: US-UNITED THERAPEUTICS-UNT-2015-014096

PATIENT
  Age: 63 Year
  Sex: Female
  Weight: 115.65 kg

DRUGS (3)
  1. ADEMPAS [Suspect]
     Active Substance: RIOCIGUAT
     Indication: PRODUCT USED FOR UNKNOWN INDICATION
  2. TYVASO [Suspect]
     Active Substance: TREPROSTINIL
     Indication: PULMONARY ARTERIAL HYPERTENSION
     Dosage: 18-54 MICROGRAMS, QID
     Dates: start: 20151016
  3. OPSUMIT [Concomitant]
     Active Substance: MACITENTAN
     Indication: PRODUCT USED FOR UNKNOWN INDICATION

REACTIONS (16)
  - Tremor [Unknown]
  - Haematochezia [Unknown]
  - Decreased appetite [Recovering/Resolving]
  - Dyspepsia [Unknown]
  - Cough [Unknown]
  - Nasal congestion [Unknown]
  - Tinnitus [Unknown]
  - Fatigue [Recovering/Resolving]
  - Erythema [Unknown]
  - Headache [Unknown]
  - Somnolence [Unknown]
  - Dyspnoea [Unknown]
  - Sensitivity to weather change [Unknown]
  - Ear pain [Unknown]
  - Hypersomnia [Unknown]
  - Weight decreased [Unknown]

NARRATIVE: CASE EVENT DATE: 201511
